FAERS Safety Report 5260911-4 (Version None)
Quarter: 2007Q1

REPORT INFORMATION
  Report Type: 
  Country: None (occurrence: None)
  Receive Date: 20070309
  Receipt Date: 20070226
  Transmission Date: 20070707
  Serious: Yes (Other)
  Sender: FDA-Public Use
  Company Number: EG-ROCHE-484249

PATIENT
  Age: 40 Year
  Sex: Female
  Weight: 113 kg

DRUGS (2)
  1. XENICAL [Suspect]
     Dosage: 2 CAPSULES AT LUNCH, 1 CAPSULE AT DINNER
     Route: 065
     Dates: start: 20060615, end: 20061212
  2. 1 CONCOMITANT DRUG [Concomitant]
     Dosage: REPORTED AS OMEGA 3 VITAMINS

REACTIONS (4)
  - ALOPECIA [None]
  - DRY MOUTH [None]
  - DRY SKIN [None]
  - ONYCHOCLASIS [None]
